FAERS Safety Report 16704348 (Version 1)
Quarter: 2019Q3

REPORT INFORMATION
  Report Type: Report from Study
  Country: ES (occurrence: ES)
  Receive Date: 20190814
  Receipt Date: 20190814
  Transmission Date: 20191004
  Serious: Yes (Hospitalization)
  Sender: FDA-Public Use
  Company Number: ES-MYLANLABS-2019M1075028

PATIENT
  Age: 70 Year
  Sex: Male

DRUGS (5)
  1. OMEPRAZOL                          /00661201/ [Concomitant]
     Active Substance: OMEPRAZOLE
     Indication: PROPHYLAXIS
     Dosage: 20 MILLIGRAM, QD
     Route: 048
     Dates: start: 20180501
  2. ESPIRONOLACTONA [Interacting]
     Active Substance: SPIRONOLACTONE
     Indication: ASCITES
     Dosage: 50 MILLIGRAM, QD
     Route: 048
     Dates: start: 20180601, end: 20180930
  3. FUROSEMIDE. [Suspect]
     Active Substance: FUROSEMIDE
     Indication: ASCITES
     Dosage: 60 MILLIGRAM, QD
     Route: 048
     Dates: start: 20180601, end: 20180930
  4. RIFAXIMINA [Concomitant]
     Active Substance: RIFAXIMIN
     Indication: PROPHYLAXIS
     Dosage: 400 MILLIGRAM, QD
     Route: 048
     Dates: start: 20180921
  5. NORFLOXACINO [Concomitant]
     Active Substance: NORFLOXACIN
     Indication: PROPHYLAXIS
     Dosage: 400 MILLIGRAM, QD
     Route: 048
     Dates: start: 20180601

REACTIONS (2)
  - Drug interaction [Unknown]
  - Acute kidney injury [Recovered/Resolved]

NARRATIVE: CASE EVENT DATE: 20180927
